FAERS Safety Report 23466425 (Version 1)
Quarter: 2024Q1

REPORT INFORMATION
  Report Type: Spontaneous
  Country: US (occurrence: None)
  Receive Date: 20240131
  Receipt Date: 20240131
  Transmission Date: 20240409
  Serious: Yes (Life-Threatening, Disabling, Other)
  Sender: FDA-Public Use
  Company Number: None

PATIENT
  Age: 50 Year
  Sex: Female
  Weight: 60.75 kg

DRUGS (21)
  1. KLONOPIN [Suspect]
     Active Substance: CLONAZEPAM
     Indication: Insomnia
     Dates: start: 20160401, end: 20220428
  2. KLONOPIN [Suspect]
     Active Substance: CLONAZEPAM
     Indication: Anxiety
  3. RIVOTRIL [Suspect]
     Active Substance: CLONAZEPAM
  4. EFFEXOR [Concomitant]
     Active Substance: VENLAFAXINE HYDROCHLORIDE
  5. Trrazodone [Concomitant]
  6. LAMICTAL [Concomitant]
     Active Substance: LAMOTRIGINE
  7. PROPRANOLOL [Concomitant]
     Active Substance: PROPRANOLOL HYDROCHLORIDE
  8. AIMOVIG [Concomitant]
     Active Substance: ERENUMAB-AOOE
  9. PROGESTERONE [Concomitant]
     Active Substance: PROGESTERONE
  10. ESTRADIOL [Concomitant]
     Active Substance: ESTRADIOL
  11. OMEPRAZOLE [Concomitant]
     Active Substance: OMEPRAZOLE
  12. CONCERTA [Concomitant]
     Active Substance: METHYLPHENIDATE HYDROCHLORIDE
  13. Omega-3 FiberCon [Concomitant]
  14. CALCIUM POLYCARBOPHIL [Concomitant]
  15. MIRALAX [Concomitant]
     Active Substance: POLYETHYLENE GLYCOL 3350
  16. IRON\VITAMINS [Concomitant]
     Active Substance: IRON\VITAMINS
  17. MAGNESIUM [Concomitant]
     Active Substance: MAGNESIUM
  18. CYANOCOBALAMIN\DEXPANTHENOL\NIACINAMIDE\PYRIDOXINE HYDROCHLORIDE\RIBOF [Concomitant]
     Active Substance: CYANOCOBALAMIN\DEXPANTHENOL\NIACINAMIDE\PYRIDOXINE HYDROCHLORIDE\RIBOFLAVIN 5^-PHOSPHATE SODIUM\THIA
  19. VITAMIN D3 [Concomitant]
     Active Substance: CHOLECALCIFEROL
  20. LYSINE [Concomitant]
     Active Substance: LYSINE
  21. VITAMIN C [Concomitant]
     Active Substance: ASCORBIC ACID

REACTIONS (15)
  - Nervous system disorder [None]
  - Muscle twitching [None]
  - Dyskinesia [None]
  - Seizure like phenomena [None]
  - Insomnia [None]
  - Drug tolerance [None]
  - Anxiety [None]
  - Emotional disorder [None]
  - Tremor [None]
  - Palpitations [None]
  - Hypopnoea [None]
  - Dyspnoea [None]
  - Dizziness [None]
  - Cognitive disorder [None]
  - Dyscalculia [None]

NARRATIVE: CASE EVENT DATE: 20220429
